FAERS Safety Report 8482696-0 (Version None)
Quarter: 2012Q3

REPORT INFORMATION
  Report Type: 
  Country: None (occurrence: None)
  Receive Date: 20120702
  Receipt Date: 20120627
  Transmission Date: 20120928
  Serious: Yes (Hospitalization, Disabling)
  Sender: FDA-Public Use
  Company Number: US-MERCK-1203USA03482

PATIENT
  Age: 65 Year
  Sex: Female

DRUGS (5)
  1. FOSAMAX [Suspect]
     Route: 048
     Dates: start: 20010213, end: 20071001
  2. FOSAMAX [Suspect]
     Indication: OSTEOPOROSIS
     Route: 048
     Dates: start: 19980601, end: 20010105
  3. LAMICTAL [Concomitant]
     Indication: CONVULSION
     Route: 065
     Dates: start: 20000101
  4. PHENOBARBITAL [Concomitant]
     Indication: CONVULSION
     Route: 065
     Dates: start: 19970101
  5. MIACALCIN [Concomitant]
     Indication: OSTEOPOROSIS
     Route: 065
     Dates: start: 20010101, end: 20070101

REACTIONS (13)
  - HIP FRACTURE [None]
  - ADVERSE EVENT [None]
  - BLOOD CHOLESTEROL INCREASED [None]
  - DIZZINESS [None]
  - EYE DISORDER [None]
  - OSTEOPOROSIS [None]
  - CONVULSION [None]
  - STRESS FRACTURE [None]
  - LOW TURNOVER OSTEOPATHY [None]
  - HYPERTENSION [None]
  - FEMUR FRACTURE [None]
  - HEART RATE INCREASED [None]
  - CORONARY ARTERY DISEASE [None]
